FAERS Safety Report 8330322-3 (Version None)
Quarter: 2012Q2

REPORT INFORMATION
  Report Type: 
  Country: None (occurrence: None)
  Receive Date: 20120430
  Receipt Date: 20120416
  Transmission Date: 20120825
  Serious: Yes (Life-Threatening, Hospitalization)
  Sender: FDA-Public Use
  Company Number: DSA_56287_2012

PATIENT
  Age: 65 Year
  Sex: Female

DRUGS (7)
  1. AUGMENTIN [Suspect]
     Indication: PRODUCT USED FOR UNKNOWN INDICATION
     Dosage: (1 G TID ORAL)
     Route: 048
     Dates: end: 20120123
  2. FLAGYL [Suspect]
     Indication: PRODUCT USED FOR UNKNOWN INDICATION
     Dosage: (500 MG TID INTRAVENOUS (NOT OTHERWISE SPECIFIED)
     Route: 042
     Dates: start: 20120117, end: 20120119
  3. CLAFORAN [Suspect]
     Indication: PRODUCT USED FOR UNKNOWN INDICATION
     Dosage: (1 G TID INTRAVENOUS (NOT OTHERWISE SPECIFIED)
     Route: 042
     Dates: start: 20120117, end: 20120119
  4. CALCIPARINE [Suspect]
     Indication: PRODUCT USED FOR UNKNOWN INDICATION
     Dosage: (0.2 ML BID SUBCUTANEOUS) ; (DF SUBCUTANEOUS)
     Route: 058
     Dates: start: 20120116, end: 20120123
  5. CALCIPARINE [Suspect]
     Indication: PRODUCT USED FOR UNKNOWN INDICATION
     Dosage: (0.2 ML BID SUBCUTANEOUS) ; (DF SUBCUTANEOUS)
     Route: 058
     Dates: end: 20120126
  6. ESOMEPRAZOLE MAGNESIUM (NEXIUM) [Suspect]
     Indication: PRODUCT USED FOR UNKNOWN INDICATION
     Dosage: (40 MG QD ORAL) : (DF)
     Route: 048
     Dates: start: 20120128
  7. ESOMEPRAZOLE MAGNESIUM (NEXIUM) [Suspect]
     Indication: PRODUCT USED FOR UNKNOWN INDICATION
     Dosage: (40 MG QD ORAL) : (DF)
     Route: 048
     Dates: start: 20120116, end: 20120125

REACTIONS (1)
  - THROMBOCYTOPENIA [None]
